FAERS Safety Report 18040062 (Version 3)
Quarter: 2020Q4

REPORT INFORMATION
  Report Type: Spontaneous
  Country: FR (occurrence: FR)
  Receive Date: 20200717
  Receipt Date: 20201125
  Transmission Date: 20210113
  Serious: Yes (Life-Threatening, Other)
  Sender: FDA-Public Use
  Company Number: FR-CELGENEUS-FRA-20200703134

PATIENT
  Age: 59 Year
  Sex: Male

DRUGS (5)
  1. ENASIDENIB [Suspect]
     Active Substance: ENASIDENIB
     Indication: ACUTE MYELOID LEUKAEMIA
     Route: 048
     Dates: start: 20191213
  2. EXJADE [Suspect]
     Active Substance: DEFERASIROX
     Indication: IRON OVERLOAD
     Route: 048
     Dates: start: 20200123, end: 20200131
  3. EXJADE [Suspect]
     Active Substance: DEFERASIROX
     Indication: OFF LABEL USE
     Route: 048
     Dates: start: 20200203, end: 20200205
  4. ENASIDENIB [Suspect]
     Active Substance: ENASIDENIB
     Indication: OFF LABEL USE
  5. EXACYL [Concomitant]
     Active Substance: TRANEXAMIC ACID
     Indication: PRODUCT USED FOR UNKNOWN INDICATION
     Route: 065
     Dates: start: 20200203, end: 20200205

REACTIONS (3)
  - Melaena [Unknown]
  - Gastrointestinal haemorrhage [Recovering/Resolving]
  - Shock haemorrhagic [Recovered/Resolved]

NARRATIVE: CASE EVENT DATE: 20200130
